FAERS Safety Report 9833365 (Version 1)
Quarter: 2014Q1

REPORT INFORMATION
  Report Type: Spontaneous
  Country: US (occurrence: US)
  Receive Date: 20140121
  Receipt Date: 20140121
  Transmission Date: 20141002
  Serious: No
  Sender: FDA-Public Use
  Company Number: US-TEVA-440010USA

PATIENT
  Sex: Male

DRUGS (1)
  1. LEVALBUTEROL [Suspect]
     Dosage: 3ML (0.31MG)

REACTIONS (1)
  - Airway peak pressure decreased [Unknown]
